FAERS Safety Report 8143195-9 (Version None)
Quarter: 2012Q1

REPORT INFORMATION
  Report Type: 
  Country: None (occurrence: None)
  Receive Date: 20120217
  Receipt Date: 20120214
  Transmission Date: 20120608
  Serious: No
  Sender: FDA-Public Use
  Company Number: US-PFIZER INC-2012040064

PATIENT
  Age: 57 Year
  Sex: Female
  Weight: 86.168 kg

DRUGS (6)
  1. JANUMET [Concomitant]
     Dosage: UNK
  2. ATORVASTATIN CALCIUM [Suspect]
     Indication: BLOOD CHOLESTEROL INCREASED
     Dosage: 80 MG, 1X/DAY
     Route: 048
     Dates: start: 20120201, end: 20120201
  3. AVAPRO [Concomitant]
     Dosage: UNK
  4. CARVEDILOL [Concomitant]
     Dosage: UNK
  5. LIPITOR [Suspect]
     Indication: BLOOD CHOLESTEROL INCREASED
     Dosage: 80 MG, 1X/DAY
     Route: 048
     Dates: start: 20110901, end: 20120201
  6. LIPITOR [Suspect]
     Dosage: UNK
     Route: 048
     Dates: start: 20120201

REACTIONS (4)
  - BURNING SENSATION [None]
  - SENSORY DISTURBANCE [None]
  - RASH [None]
  - DIARRHOEA [None]
